FAERS Safety Report 21513545 (Version 1)
Quarter: 2022Q4

REPORT INFORMATION
  Report Type: Spontaneous
  Country: CN (occurrence: CN)
  Receive Date: 20221027
  Receipt Date: 20221027
  Transmission Date: 20230113
  Serious: Yes (Hospitalization, Other)
  Sender: FDA-Public Use
  Company Number: CN-GLAXOSMITHKLINE-CN2022APC154063

PATIENT

DRUGS (1)
  1. LAMOTRIGINE [Suspect]
     Active Substance: LAMOTRIGINE
     Indication: Epilepsy
     Dosage: 50 MG, QD
     Route: 048
     Dates: start: 20220907, end: 20221012

REACTIONS (8)
  - Cerebral infarction [Recovering/Resolving]
  - Epilepsy [Recovering/Resolving]
  - Dysphagia [Recovering/Resolving]
  - Incorrect product administration duration [Recovering/Resolving]
  - Platelet count decreased [Recovering/Resolving]
  - Haemoglobin decreased [Recovering/Resolving]
  - White blood cell count decreased [Recovering/Resolving]
  - Full blood count abnormal [Recovering/Resolving]
